FAERS Safety Report 9766268 (Version 1)
Quarter: 2013Q4

REPORT INFORMATION
  Report Type: Spontaneous
  Country: US (occurrence: US)
  Receive Date: 20131217
  Receipt Date: 20131217
  Transmission Date: 20140711
  Serious: No
  Sender: FDA-Public Use
  Company Number: US-GLAXOSMITHKLINE-A1024391A

PATIENT
  Age: 70 Year
  Sex: Female

DRUGS (8)
  1. VOTRIENT [Suspect]
     Indication: RENAL CELL CARCINOMA
     Dosage: 800MG PER DAY
     Route: 048
     Dates: start: 20130507, end: 20130722
  2. ISOSORBIDE [Concomitant]
  3. CARVEDILOL [Concomitant]
  4. LISINOPRIL [Concomitant]
  5. EFFEXOR [Concomitant]
  6. GLIPIZIDE [Concomitant]
  7. CRESTOR [Concomitant]
  8. BABY ASPIRIN [Concomitant]

REACTIONS (16)
  - Diarrhoea [Not Recovered/Not Resolved]
  - Dry skin [Not Recovered/Not Resolved]
  - Headache [Not Recovered/Not Resolved]
  - Fatigue [Not Recovered/Not Resolved]
  - Chills [Recovered/Resolved]
  - Blood pressure increased [Not Recovered/Not Resolved]
  - Contusion [Not Recovered/Not Resolved]
  - Weight decreased [Not Recovered/Not Resolved]
  - Thyroid disorder [Unknown]
  - Malaise [Unknown]
  - Asthenia [Unknown]
  - Stomatitis [Unknown]
  - Dyspnoea [Unknown]
  - Dyspepsia [Unknown]
  - Dysgeusia [Unknown]
  - Drug administration error [Unknown]
